FAERS Safety Report 6711438-1 (Version None)
Quarter: 2010Q2

REPORT INFORMATION
  Report Type: 
  Country: None (occurrence: None)
  Receive Date: 20100505
  Receipt Date: 20100423
  Transmission Date: 20101027
  Serious: Yes (Other)
  Sender: FDA-Public Use
  Company Number: JP-PFIZER INC-2010048658

PATIENT
  Age: 57 Year
  Sex: Female
  Weight: 60 kg

DRUGS (10)
  1. SUNITINIB MALATE [Suspect]
     Indication: RENAL CANCER
     Dosage: 50 MG, 1X/DAY
     Route: 048
     Dates: start: 20090313
  2. MUCOSTA [Concomitant]
     Dosage: UNK
     Route: 048
  3. PRIMPERAN TAB [Concomitant]
     Dosage: UNK
     Route: 048
  4. MEILAX [Concomitant]
     Dosage: UNK
     Route: 048
  5. PAXIL [Concomitant]
     Dosage: UNK
     Route: 048
  6. UREPEARL [Concomitant]
     Dosage: UNK
     Route: 062
  7. THYRADIN S [Concomitant]
     Dosage: UNK
     Route: 048
     Dates: end: 20090410
  8. AMLODIPINE [Concomitant]
     Dosage: UNK
     Route: 048
     Dates: end: 20090410
  9. VALSARTAN [Concomitant]
     Dosage: UNK
     Route: 048
  10. NORVASC [Concomitant]
     Dosage: UNK
     Route: 048

REACTIONS (1)
  - THYROIDITIS [None]
